FAERS Safety Report 25665428 (Version 3)
Quarter: 2025Q4

REPORT INFORMATION
  Report Type: Report from Study
  Country: JP (occurrence: JP)
  Receive Date: 20250811
  Receipt Date: 20251126
  Transmission Date: 20260118
  Serious: Yes (Other)
  Sender: UCB
  Company Number: JP-UCBJ-CD202407232UCBPHAPROD

PATIENT
  Age: 6 Year
  Weight: 17.9 kg

DRUGS (20)
  1. FENFLURAMINE HYDROCHLORIDE [Suspect]
     Active Substance: FENFLURAMINE HYDROCHLORIDE
     Indication: Severe myoclonic epilepsy of infancy
     Dosage: 0.05 MILLIGRAM/KILOGRAM, 2X/DAY (BID)
  2. FENFLURAMINE HYDROCHLORIDE [Suspect]
     Active Substance: FENFLURAMINE HYDROCHLORIDE
     Dosage: 0.1 MILLIGRAM/KILOGRAM, 2X/DAY (BID)
  3. FENFLURAMINE HYDROCHLORIDE [Suspect]
     Active Substance: FENFLURAMINE HYDROCHLORIDE
     Dosage: 0.125 MILLIGRAM/KILOGRAM, 2X/DAY (BID)
  4. FENFLURAMINE HYDROCHLORIDE [Suspect]
     Active Substance: FENFLURAMINE HYDROCHLORIDE
     Dosage: 0.15 MILLIGRAM/KILOGRAM, 2X/DAY (BID)
  5. FENFLURAMINE HYDROCHLORIDE [Suspect]
     Active Substance: FENFLURAMINE HYDROCHLORIDE
     Dosage: 0.17 MILLIGRAM/KILOGRAM, 2X/DAY (BID)
  6. FENFLURAMINE HYDROCHLORIDE [Suspect]
     Active Substance: FENFLURAMINE HYDROCHLORIDE
     Dosage: 0.18 MILLIGRAM/KILOGRAM, 2X/DAY (BID)
  7. FENFLURAMINE HYDROCHLORIDE [Suspect]
     Active Substance: FENFLURAMINE HYDROCHLORIDE
     Dosage: 0.18 MILLIGRAM/KILOGRAM, 2X/DAY (BID)
  8. FENFLURAMINE HYDROCHLORIDE [Suspect]
     Active Substance: FENFLURAMINE HYDROCHLORIDE
     Dosage: 0.37 MILLIGRAM/KILOGRAM, DAILY
  9. DEPAKENE [Concomitant]
     Active Substance: VALPROIC ACID
     Indication: Severe myoclonic epilepsy of infancy
     Dosage: 500 MILLIGRAM, ONCE DAILY (QD)
  10. RIVOTRIL [Concomitant]
     Active Substance: CLONAZEPAM
     Indication: Severe myoclonic epilepsy of infancy
     Dosage: 0.7 MILLIGRAM, ONCE DAILY (QD)
  11. PHENOBARBITAL [Concomitant]
     Active Substance: PHENOBARBITAL
     Indication: Severe myoclonic epilepsy of infancy
     Dosage: 70 MILLIGRAM, ONCE DAILY (QD)
  12. PHENOBARBITAL [Concomitant]
     Active Substance: PHENOBARBITAL
     Dosage: 50 MILLIGRAM, ONCE DAILY (QD)
  13. PHENOBARBITAL [Concomitant]
     Active Substance: PHENOBARBITAL
     Dosage: 30 MILLIGRAM, ONCE DAILY (QD)
  14. PHENOBARBITAL [Concomitant]
     Active Substance: PHENOBARBITAL
     Dosage: 15 MILLIGRAM, ONCE DAILY (QD)
  15. TOPIRAMATE [Concomitant]
     Active Substance: TOPIRAMATE
     Indication: Severe myoclonic epilepsy of infancy
     Dosage: 50 MILLIGRAM, ONCE DAILY (QD)
  16. TOPIRAMATE [Concomitant]
     Active Substance: TOPIRAMATE
     Dosage: 40 MILLIGRAM, ONCE DAILY (QD)
  17. TOPIRAMATE [Concomitant]
     Active Substance: TOPIRAMATE
     Dosage: 30 MILLIGRAM, ONCE DAILY (QD)
  18. MIDAZOLAM HYDROCHLORIDE [Concomitant]
     Active Substance: MIDAZOLAM HYDROCHLORIDE
     Indication: Severe myoclonic epilepsy of infancy
     Dosage: 7.5 MILLIGRAM, ONCE DAILY (QD)
  19. LEVOCARNITINE [Concomitant]
     Active Substance: LEVOCARNITINE
     Indication: Carnitine deficiency
     Dosage: 4 MILLILITER, ONCE DAILY (QD)
  20. VALPROATE SODIUM [Concomitant]
     Active Substance: VALPROATE SODIUM
     Indication: Product used for unknown indication
     Dosage: 500 MILLIGRAM, ONCE DAILY (QD)

REACTIONS (5)
  - Pulmonary valve incompetence [Not Recovered/Not Resolved]
  - Tricuspid valve incompetence [Not Recovered/Not Resolved]
  - Febrile infection [Recovered/Resolved]
  - Prescribed underdose [Unknown]
  - Off label use [Unknown]
